FAERS Safety Report 4984410-X (Version None)
Quarter: 2006Q2

REPORT INFORMATION
  Report Type: 
  Country: None (occurrence: None)
  Receive Date: 20060420
  Receipt Date: 20041203
  Transmission Date: 20061013
  Serious: Yes (Hospitalization)
  Sender: FDA-Public Use
  Company Number: 9420

PATIENT
  Age: 52 Year
  Sex: Male

DRUGS (11)
  1. METHOTREXATE [Suspect]
     Indication: ANKYLOSING SPONDYLITIS
     Dosage: 12.5 MG WEEKLY PO
     Route: 048
     Dates: start: 20040115
  2. METHOTREXATE [Suspect]
     Indication: PSORIATIC ARTHROPATHY
     Dosage: 12.5 MG WEEKLY PO
     Route: 048
     Dates: start: 20040115
  3. METHOTREXATE [Suspect]
     Indication: ANKYLOSING SPONDYLITIS
     Dosage: 15 MG WEEKLY PO
     Route: 048
  4. METHOTREXATE [Suspect]
     Indication: PSORIATIC ARTHROPATHY
     Dosage: 15 MG WEEKLY PO
     Route: 048
  5. ENBREL [Suspect]
     Indication: ANKYLOSING SPONDYLITIS
     Dosage: 25 MG 2/WK SC
     Route: 058
     Dates: start: 20040529, end: 20040902
  6. ENBREL [Suspect]
     Indication: PSORIATIC ARTHROPATHY
     Dosage: 25 MG 2/WK SC
     Route: 058
     Dates: start: 20040529, end: 20040902
  7. CORTANCYL [Suspect]
     Indication: ANKYLOSING SPONDYLITIS
     Dosage: 10 MG QD PO
     Route: 048
     Dates: end: 20050101
  8. CORTANCYL [Suspect]
     Indication: PSORIATIC ARTHROPATHY
     Dosage: 10 MG QD PO
     Route: 048
     Dates: end: 20050101
  9. CORTANCYL [Suspect]
     Indication: ANKYLOSING SPONDYLITIS
     Dosage: 5 MG QD PO
     Route: 048
     Dates: start: 20050101
  10. CORTANCYL [Suspect]
     Indication: PSORIATIC ARTHROPATHY
     Dosage: 5 MG QD PO
     Route: 048
     Dates: start: 20050101
  11. APROVEL [Concomitant]

REACTIONS (6)
  - ABSCESS [None]
  - ARRHYTHMIA [None]
  - CONDITION AGGRAVATED [None]
  - ECHINOCOCCIASIS [None]
  - MYOCARDIAL ISCHAEMIA [None]
  - TACHYCARDIA [None]
